FAERS Safety Report 22639568 (Version 1)
Quarter: 2023Q2

REPORT INFORMATION
  Report Type: Spontaneous
  Country: NG (occurrence: NG)
  Receive Date: 20230626
  Receipt Date: 20230626
  Transmission Date: 20230722
  Serious: Yes (Disabling)
  Sender: FDA-Public Use
  Company Number: NG-002147023-NVSC2023NG140348

PATIENT
  Age: 64 Year
  Sex: Male
  Weight: 70 kg

DRUGS (2)
  1. RANIBIZUMAB [Suspect]
     Active Substance: RANIBIZUMAB
     Indication: Diabetic retinopathy
     Dosage: 3 UG, QMO
     Route: 047
     Dates: start: 20230602
  2. RANIBIZUMAB [Suspect]
     Active Substance: RANIBIZUMAB
     Indication: Diabetic retinal oedema

REACTIONS (6)
  - Vitritis [Not Recovered/Not Resolved]
  - Tractional retinal detachment [Not Recovered/Not Resolved]
  - Eye inflammation [Unknown]
  - Eye pain [Unknown]
  - Ocular hyperaemia [Unknown]
  - Incorrect dose administered [Unknown]

NARRATIVE: CASE EVENT DATE: 20230602
